FAERS Safety Report 5668994-4 (Version None)
Quarter: 2008Q1

REPORT INFORMATION
  Report Type: 
  Country: None (occurrence: None)
  Receive Date: 20080317
  Receipt Date: 20080215
  Transmission Date: 20080703
  Serious: No
  Sender: FDA-Public Use
  Company Number: US-BAYER-200814538NA

PATIENT
  Age: 64 Year
  Sex: Male

DRUGS (7)
  1. LEVITRA [Suspect]
     Indication: ERECTILE DYSFUNCTION
     Dosage: AS USED: 20 MG  UNIT DOSE: 20 MG
     Route: 048
     Dates: start: 20080101
  2. LEVITRA [Suspect]
     Route: 048
     Dates: start: 20060101
  3. AVAPRO [Concomitant]
  4. COUMADIN [Concomitant]
  5. ZETIA [Concomitant]
  6. METFORMIN [Concomitant]
  7. LOVASTATIN [Concomitant]

REACTIONS (3)
  - ABDOMINAL DISCOMFORT [None]
  - CHEST DISCOMFORT [None]
  - NASAL CONGESTION [None]
